FAERS Safety Report 7684228-3 (Version None)
Quarter: 2011Q3

REPORT INFORMATION
  Report Type: 
  Country: None (occurrence: None)
  Receive Date: 20110815
  Receipt Date: 20110809
  Transmission Date: 20111222
  Serious: Yes (Hospitalization, Other)
  Sender: FDA-Public Use
  Company Number: US-MERCK-1106USA00671

PATIENT
  Age: 65 Year
  Sex: Female
  Weight: 66 kg

DRUGS (24)
  1. ZOLPIDEM TARTRATE [Concomitant]
     Dosage: NIGHTLY
     Route: 048
  2. SYNTHROID [Concomitant]
     Route: 065
  3. ESTROGENS (UNSPECIFIED) [Concomitant]
     Route: 067
  4. VITAMIN D (UNSPECIFIED) [Concomitant]
     Route: 065
  5. FOSAMAX [Suspect]
     Route: 065
  6. FOSAMAX PLUS D [Suspect]
     Indication: OSTEOPENIA
     Route: 048
     Dates: start: 20080421, end: 20080512
  7. BUPROPION HYDROCHLORIDE [Concomitant]
     Route: 048
  8. ESTRACE [Concomitant]
     Route: 065
  9. FOSAMAX [Suspect]
     Route: 065
  10. CITRACAL + D [Concomitant]
     Route: 065
  11. SERTRALINE HYDROCHLORIDE [Concomitant]
     Route: 065
  12. COLACE [Concomitant]
     Dosage: BID
     Route: 048
  13. PANTOPRAZOLE [Concomitant]
     Route: 048
  14. ENOXAPARIN SODIUM [Concomitant]
     Route: 058
  15. PRILOSEC [Concomitant]
     Route: 048
  16. CHOLECALCIFEROL [Concomitant]
     Route: 065
  17. ESTRADIOL [Concomitant]
     Route: 065
  18. FOSAMAX [Suspect]
     Indication: OSTEOPOROSIS POSTMENOPAUSAL
     Route: 048
     Dates: start: 20020101, end: 20100301
  19. FOSAMAX [Suspect]
     Indication: OSTEOPENIA
     Route: 048
     Dates: start: 20020101, end: 20100301
  20. FOSAMAX [Suspect]
     Route: 048
     Dates: start: 20020101, end: 20100101
  21. FOSAMAX [Suspect]
     Route: 048
     Dates: start: 20020101, end: 20100101
  22. LEVOTHYROXINE SODIUM [Concomitant]
     Route: 048
  23. CALCIUM (UNSPECIFIED) [Concomitant]
     Route: 065
  24. CALCIUM (UNSPECIFIED) AND VITAMIN D (UNSPECIFIED) [Concomitant]
     Route: 065

REACTIONS (65)
  - OSTEONECROSIS [None]
  - PATELLA FRACTURE [None]
  - ACTIVITIES OF DAILY LIVING IMPAIRED [None]
  - LIGAMENT SPRAIN [None]
  - ROTATOR CUFF SYNDROME [None]
  - RESORPTION BONE INCREASED [None]
  - ANIMAL BITE [None]
  - DEPRESSION [None]
  - BLOOD CORTISOL DECREASED [None]
  - BLOOD MAGNESIUM DECREASED [None]
  - HYPERCORTICOIDISM [None]
  - PERIPHERAL SENSORY NEUROPATHY [None]
  - PAIN IN EXTREMITY [None]
  - URINARY INCONTINENCE [None]
  - NIGHT SWEATS [None]
  - GOITRE [None]
  - APPENDIX DISORDER [None]
  - COLITIS MICROSCOPIC [None]
  - LYMPHADENOPATHY [None]
  - LOSS OF CONSCIOUSNESS [None]
  - UMBILICAL HERNIA [None]
  - THYROID DISORDER [None]
  - OBSESSIVE-COMPULSIVE DISORDER [None]
  - MULTIPLE MYELOMA [None]
  - BONE METABOLISM DISORDER [None]
  - BACK PAIN [None]
  - ANXIETY [None]
  - ATTENTION DEFICIT/HYPERACTIVITY DISORDER [None]
  - ARTHROPATHY [None]
  - HUMERUS FRACTURE [None]
  - SUICIDAL IDEATION [None]
  - RIB FRACTURE [None]
  - FALL [None]
  - DRUG INEFFECTIVE [None]
  - FATIGUE [None]
  - OSTEOARTHRITIS [None]
  - FOOT FRACTURE [None]
  - BODY HEIGHT DECREASED [None]
  - ADENOIDAL DISORDER [None]
  - MUSCULOSKELETAL DISCOMFORT [None]
  - CYSTITIS [None]
  - EXOSTOSIS [None]
  - LOW TURNOVER OSTEOPATHY [None]
  - PROCEDURAL VOMITING [None]
  - ABDOMINAL HERNIA [None]
  - HEADACHE [None]
  - CONTUSION [None]
  - STRESS FRACTURE [None]
  - OSTEOPENIA [None]
  - TONSILLAR DISORDER [None]
  - OEDEMA PERIPHERAL [None]
  - MUSCULOSKELETAL DISORDER [None]
  - MUSCLE SPASMS [None]
  - GASTROOESOPHAGEAL REFLUX DISEASE [None]
  - HAND FRACTURE [None]
  - FRACTURE [None]
  - FINGER DEFORMITY [None]
  - BONE DENSITY DECREASED [None]
  - DUODENITIS [None]
  - PSYCHOMOTOR HYPERACTIVITY [None]
  - FEMORAL NECK FRACTURE [None]
  - LIP INJURY [None]
  - TENDON DISORDER [None]
  - RENAL DISORDER [None]
  - TOOTH LOSS [None]
